FAERS Safety Report 5322410-0 (Version None)
Quarter: 2007Q2

REPORT INFORMATION
  Report Type: 
  Country: None (occurrence: None)
  Receive Date: 20070511
  Receipt Date: 20070502
  Transmission Date: 20071010
  Serious: Yes (Death, Hospitalization, Other)
  Sender: FDA-Public Use
  Company Number: ES-AVENTIS-200711907GDDC

PATIENT
  Age: 66 Year
  Sex: Female

DRUGS (15)
  1. ARAVA [Suspect]
     Indication: RHEUMATOID ARTHRITIS
     Route: 048
     Dates: start: 20050601, end: 20070213
  2. METHOTREXATE [Suspect]
     Indication: RHEUMATOID ARTHRITIS
     Route: 058
     Dates: end: 20070213
  3. METHYLPREDNISOLONE [Concomitant]
  4. ACOVIL [Concomitant]
     Indication: HYPERTENSION
     Dosage: DOSE: UNK
  5. PREVENCOR                          /01326102/ [Concomitant]
     Indication: DYSLIPIDAEMIA
     Dosage: DOSE: UNK
  6. ACREL [Concomitant]
     Indication: ARTHROPATHY
  7. ACREL [Concomitant]
     Indication: OSTEOARTHRITIS
  8. DISNAL [Concomitant]
     Indication: ARTHROPATHY
     Dosage: DOSE: 1 TABLET
  9. DISNAL [Concomitant]
     Indication: OSTEOARTHRITIS
     Dosage: DOSE: 1 TABLET
  10. INSULIN NOVOMIX                    /01758401/ [Concomitant]
     Indication: DIABETES MELLITUS
  11. INSULIN NOVOMIX                    /01758401/ [Concomitant]
  12. SEGURIL                            /00032601/ [Concomitant]
     Indication: CARDIAC FAILURE
  13. FLUOXETINE [Concomitant]
  14. ACFOL [Concomitant]
     Dosage: DOSE: 1 TABLET
  15. NAPROSYN [Concomitant]
     Dosage: DOSE: 1 TABLET

REACTIONS (26)
  - ANAEMIA [None]
  - BLOOD PRESSURE SYSTOLIC INCREASED [None]
  - BODY TEMPERATURE DECREASED [None]
  - BONE MARROW FAILURE [None]
  - CARDIAC FAILURE [None]
  - CREPITATIONS [None]
  - ECCHYMOSIS [None]
  - FEELING ABNORMAL [None]
  - GAMMA-GLUTAMYLTRANSFERASE INCREASED [None]
  - LYMPHOCYTE PERCENTAGE INCREASED [None]
  - MOUTH ULCERATION [None]
  - MUCOSAL INFLAMMATION [None]
  - ODYNOPHAGIA [None]
  - ORAL CANDIDIASIS [None]
  - OXYGEN SATURATION DECREASED [None]
  - PETECHIAE [None]
  - PLATELET COUNT DECREASED [None]
  - PNEUMONIA [None]
  - PO2 DECREASED [None]
  - PYREXIA [None]
  - RED BLOOD CELL COUNT DECREASED [None]
  - RHONCHI [None]
  - SUPERINFECTION [None]
  - TREATMENT NONCOMPLIANCE [None]
  - VOMITING [None]
  - WHITE BLOOD CELL COUNT DECREASED [None]
